FAERS Safety Report 19789252 (Version 2)
Quarter: 2021Q3

REPORT INFORMATION
  Report Type: Spontaneous
  Country: CA (occurrence: CA)
  Receive Date: 20210905
  Receipt Date: 20210923
  Transmission Date: 20211014
  Serious: Yes (Hospitalization)
  Sender: FDA-Public Use
  Company Number: CA-TEVA-2021-CA-1947958

PATIENT
  Age: 33 Year
  Sex: Male
  Weight: 93 kg

DRUGS (13)
  1. CISPLATIN INJECTION [Suspect]
     Active Substance: CISPLATIN
  2. EMEND [Concomitant]
     Active Substance: APREPITANT
  3. LORAZEPAM. [Concomitant]
     Active Substance: LORAZEPAM
  4. DOXORUBICIN HYDROCHLORIDE INJECTION [Suspect]
     Active Substance: DOXORUBICIN HYDROCHLORIDE
  5. DOXORUBICIN HYDROCHLORIDE INJECTION [Suspect]
     Active Substance: DOXORUBICIN HYDROCHLORIDE
     Indication: OSTEOSARCOMA
  6. OLANZAPINE. [Concomitant]
     Active Substance: OLANZAPINE
  7. PREGABALIN. [Concomitant]
     Active Substance: PREGABALIN
  8. LAX?A?DAY [Concomitant]
     Active Substance: POLYETHYLENE GLYCOL 3350
  9. CISPLATIN INJECTION [Suspect]
     Active Substance: CISPLATIN
     Indication: OSTEOSARCOMA
  10. DEXAMETHASONE. [Concomitant]
     Active Substance: DEXAMETHASONE
  11. MORPHINE [Concomitant]
     Active Substance: MORPHINE
  12. ONDANSETRON [Concomitant]
     Active Substance: ONDANSETRON
  13. PROCHLORPERAZINE. [Concomitant]
     Active Substance: PROCHLORPERAZINE

REACTIONS (1)
  - Febrile neutropenia [Recovered/Resolved]
